FAERS Safety Report 9187088 (Version 1)
Quarter: 2013Q1

REPORT INFORMATION
  Report Type: Spontaneous
  Country: US (occurrence: US)
  Receive Date: 20130325
  Receipt Date: 20130325
  Transmission Date: 20140127
  Serious: No
  Sender: FDA-Public Use
  Company Number: US-009507513-1303USA010997

PATIENT
  Sex: 0

DRUGS (4)
  1. SINGULAIR [Suspect]
     Route: 048
  2. EFFEXOR XR [Concomitant]
     Dosage: 75 MG, QD
  3. COUMADIN [Concomitant]
     Dosage: 2.5 MG, UNK
  4. TRILEPTAL [Concomitant]
     Dosage: UNK

REACTIONS (1)
  - Hypersensitivity [Unknown]
